FAERS Safety Report 16564241 (Version 1)
Quarter: 2019Q3

REPORT INFORMATION
  Report Type: Spontaneous
  Country: FR (occurrence: FR)
  Receive Date: 20190712
  Receipt Date: 20190712
  Transmission Date: 20191004
  Serious: Yes (Hospitalization, Other)
  Sender: FDA-Public Use
  Company Number: FR-SA-2019SA186622

PATIENT
  Age: 73 Year
  Sex: Male

DRUGS (3)
  1. FLUCONAZOLE. [Suspect]
     Active Substance: FLUCONAZOLE
     Indication: CANDIDA INFECTION
     Route: 048
     Dates: start: 20190502, end: 20190508
  2. RIFAMPICIN [Suspect]
     Active Substance: RIFAMPIN
     Indication: IMMUNISATION
     Route: 048
     Dates: start: 20190401, end: 20190510
  3. ISONIAZID. [Suspect]
     Active Substance: ISONIAZID
     Indication: IMMUNISATION
     Dosage: UNK
     Route: 048
     Dates: start: 20190401, end: 20190510

REACTIONS (1)
  - Pancreatitis [Recovering/Resolving]

NARRATIVE: CASE EVENT DATE: 20190507
